FAERS Safety Report 6848923-8 (Version None)
Quarter: 2010Q3

REPORT INFORMATION
  Report Type: 
  Country: None (occurrence: None)
  Receive Date: 20100716
  Receipt Date: 20071025
  Transmission Date: 20110219
  Serious: No
  Sender: FDA-Public Use
  Company Number: US-PFIZER INC-2007075542

PATIENT
  Sex: Male
  Weight: 104.3 kg

DRUGS (6)
  1. CHANTIX [Suspect]
     Indication: SMOKING CESSATION THERAPY
     Route: 048
     Dates: start: 20070824, end: 20070906
  2. ANTIHYPERTENSIVES [Concomitant]
     Indication: HYPERTENSION
  3. LISINOPRIL AND HYDROCHLOROTHIAZIDE [Concomitant]
  4. PRILOSEC [Concomitant]
  5. SIMVASTATIN [Concomitant]
  6. LORATADINE [Concomitant]

REACTIONS (8)
  - ANXIETY [None]
  - INSOMNIA [None]
  - MALAISE [None]
  - MOOD ALTERED [None]
  - MOOD SWINGS [None]
  - NAUSEA [None]
  - PERSONALITY DISORDER [None]
  - VOMITING [None]
